FAERS Safety Report 23631541 (Version 3)
Quarter: 2024Q1

REPORT INFORMATION
  Report Type: Report from Study
  Country: US (occurrence: US)
  Receive Date: 20240314
  Receipt Date: 20240318
  Transmission Date: 20240410
  Serious: Yes (Hospitalization, Other)
  Sender: FDA-Public Use
  Company Number: US-PFIZER INC-202300348328

PATIENT
  Age: 85 Year
  Sex: Female

DRUGS (14)
  1. IBRANCE [Suspect]
     Active Substance: PALBOCICLIB
     Dosage: 125 MG, CYCLIC DAILY X 21 DAYS, EVERY 28 DAYS
     Route: 048
     Dates: start: 20230131
  2. ASPIRIN [Concomitant]
     Active Substance: ASPIRIN
     Dosage: UNK
  3. CLONIDINE [Concomitant]
     Active Substance: CLONIDINE
     Dosage: 0.1 MG
  4. LOSARTAN POTASSIUM [Concomitant]
     Active Substance: LOSARTAN POTASSIUM
  5. COLACE [Concomitant]
     Active Substance: DOCUSATE SODIUM
     Dosage: 100 MG
  6. DOXYCYCLINE HYCLATE [Concomitant]
     Active Substance: DOXYCYCLINE HYCLATE
  7. DOXYCYCLINE [Concomitant]
     Active Substance: DOXYCYCLINE
     Dosage: 100 MG
  8. DIALYVITE VITAMIN D 5000 [Concomitant]
  9. FASLODEX [Concomitant]
     Active Substance: FULVESTRANT
     Dosage: 50 MG/ML, 250 MG/5 ML
  10. LOSARTAN [Concomitant]
     Active Substance: LOSARTAN
     Dosage: 100 MG
  11. METOPROLOL [Concomitant]
     Active Substance: METOPROLOL
     Dosage: 100 MG
  12. SENNA LEAF [Concomitant]
     Active Substance: SENNA LEAF
  13. VITAMIN D3 [Concomitant]
     Active Substance: CHOLECALCIFEROL
  14. SENNOSIDES A AND B [Concomitant]
     Active Substance: SENNOSIDES A AND B
     Dosage: 8.6 MG

REACTIONS (4)
  - Infection [Not Recovered/Not Resolved]
  - Cystitis [Unknown]
  - Enterovesical fistula [Recovered/Resolved]
  - Bone operation [Unknown]
